FAERS Safety Report 8122898-6 (Version None)
Quarter: 2012Q1

REPORT INFORMATION
  Report Type: 
  Country: None (occurrence: None)
  Receive Date: 20120208
  Receipt Date: 20120202
  Transmission Date: 20120608
  Serious: Yes (Other)
  Sender: FDA-Public Use
  Company Number: US-PFIZER INC-2012030719

PATIENT
  Sex: Female

DRUGS (2)
  1. ADRIAMYCIN PFS [Suspect]
     Indication: BREAST CANCER
  2. CYTOXAN [Suspect]
     Indication: BREAST CANCER

REACTIONS (2)
  - PLACENTA PRAEVIA [None]
  - PREMATURE DELIVERY [None]
